FAERS Safety Report 25664495 (Version 1)
Quarter: 2025Q3

REPORT INFORMATION
  Report Type: Spontaneous
  Country: US (occurrence: US)
  Receive Date: 20250811
  Receipt Date: 20250811
  Transmission Date: 20251020
  Serious: Yes (Other)
  Sender: SANOFI AVENTIS
  Company Number: US-SA-2025SA232844

PATIENT
  Age: 83 Year
  Sex: Male
  Weight: 86.18 kg

DRUGS (17)
  1. DUPIXENT [Suspect]
     Active Substance: DUPILUMAB
     Indication: Dermatitis atopic
     Dosage: 300 MG, QOW
     Route: 058
  2. ASPIRIN [Concomitant]
     Active Substance: ASPIRIN
  3. ATORVASTATIN CALCIUM [Concomitant]
     Active Substance: ATORVASTATIN CALCIUM
  4. GABAPENTIN [Concomitant]
     Active Substance: GABAPENTIN
  5. VYNDAMAX [Concomitant]
     Active Substance: TAFAMIDIS
  6. VITAMINS [Concomitant]
     Active Substance: VITAMINS
  7. ALTACE [Concomitant]
     Active Substance: RAMIPRIL
  8. ALENDRONATE SODIUM [Concomitant]
     Active Substance: ALENDRONATE SODIUM
  9. JARDIANCE [Concomitant]
     Active Substance: EMPAGLIFLOZIN
  10. BREZTRI [Concomitant]
     Active Substance: BUDESONIDE\FORMOTEROL\GLYCOPYRROLATE
  11. ALDACTONE [Concomitant]
     Active Substance: SPIRONOLACTONE
  12. LIDOCAINE [Concomitant]
     Active Substance: LIDOCAINE
  13. CYANOCOBALAMIN\DEXPANTHENOL\NIACINAMIDE\PYRIDOXINE HYDROCHLORIDE\RIBOF [Concomitant]
     Active Substance: CYANOCOBALAMIN\DEXPANTHENOL\NIACINAMIDE\PYRIDOXINE HYDROCHLORIDE\RIBOFLAVIN 5^-PHOSPHATE SODIUM\THIA
  14. FUROSEMIDE [Concomitant]
     Active Substance: FUROSEMIDE
  15. SERTRALINE HYDROCHLORIDE [Concomitant]
     Active Substance: SERTRALINE HYDROCHLORIDE
  16. RAMIPRIL [Concomitant]
     Active Substance: RAMIPRIL
  17. CALCIUM\CHOLECALCIFEROL [Concomitant]
     Active Substance: CALCIUM\CHOLECALCIFEROL

REACTIONS (2)
  - Neoplasm malignant [Unknown]
  - Stent placement [Unknown]

NARRATIVE: CASE EVENT DATE: 20250301
